FAERS Safety Report 9092571 (Version 1)
Quarter: 2013Q1

REPORT INFORMATION
  Report Type: Spontaneous
  Country: US (occurrence: None)
  Receive Date: 20130213
  Receipt Date: 20130213
  Transmission Date: 20140127
  Serious: Yes (Hospitalization)
  Sender: FDA-Public Use
  Company Number: None

PATIENT
  Sex: Female
  Weight: 95.3 kg

DRUGS (1)
  1. LAMICTAL 100 [Suspect]
     Indication: BIPOLAR DISORDER
     Route: 048

REACTIONS (3)
  - Rash [None]
  - Chest pain [None]
  - Pharyngeal disorder [None]
